FAERS Safety Report 24394338 (Version 1)
Quarter: 2024Q4

REPORT INFORMATION
  Report Type: Spontaneous
  Country: CA (occurrence: CA)
  Receive Date: 20241004
  Receipt Date: 20241004
  Transmission Date: 20250115
  Serious: Yes (Other)
  Sender: BRISTOL MYERS SQUIBB
  Company Number: CA-BRISTOL-MYERS SQUIBB COMPANY-2024-154749

PATIENT
  Age: 10 Month
  Sex: Female

DRUGS (8)
  1. DASATINIB [Suspect]
     Active Substance: DASATINIB
     Indication: Systemic mastocytosis
  2. CALCIUM [Concomitant]
     Active Substance: CALCIUM
     Indication: Product used for unknown indication
  3. CROMOGLYCATE DISODIUM [Concomitant]
     Indication: Product used for unknown indication
  4. IMATINIB [Concomitant]
     Active Substance: IMATINIB
     Indication: Systemic mastocytosis
  5. INTERFERON [Concomitant]
     Active Substance: INTERFERON
     Indication: Systemic mastocytosis
  6. LANSOPRAZOLE [Concomitant]
     Active Substance: LANSOPRAZOLE
     Indication: Product used for unknown indication
  7. PREDNISONE [Concomitant]
     Active Substance: PREDNISONE
     Indication: Systemic mastocytosis
  8. TOPIRAMATE [Concomitant]
     Active Substance: TOPIRAMATE
     Indication: Seizure

REACTIONS (9)
  - Adrenal insufficiency [Unknown]
  - Bone development abnormal [Unknown]
  - Drug ineffective [Unknown]
  - Failure to thrive [Unknown]
  - Gastrointestinal disorder [Unknown]
  - Idiopathic intracranial hypertension [Unknown]
  - Osteoporosis [Unknown]
  - Stevens-Johnson syndrome [Unknown]
  - Off label use [Unknown]
